FAERS Safety Report 26120215 (Version 1)
Quarter: 2025Q4

REPORT INFORMATION
  Report Type: Spontaneous
  Country: IN (occurrence: IN)
  Receive Date: 20251204
  Receipt Date: 20251204
  Transmission Date: 20260118
  Serious: Yes (Death, Life-Threatening)
  Sender: GE HEALTHCARE
  Company Number: IN-GE HEALTHCARE-2025CSU016932

PATIENT
  Age: 32 Year
  Sex: Male

DRUGS (1)
  1. OMNIPAQUE [Suspect]
     Active Substance: IOHEXOL
     Indication: Transcatheter arterial chemoembolisation
     Dosage: UNK UNK, TOTAL
     Route: 013

REACTIONS (5)
  - Haemolytic anaemia [Fatal]
  - Haemolytic uraemic syndrome [Fatal]
  - Glucose-6-phosphate dehydrogenase deficiency [Fatal]
  - Sepsis [Fatal]
  - Haemolysis [Fatal]
